FAERS Safety Report 4652214-3 (Version None)
Quarter: 2005Q2

REPORT INFORMATION
  Report Type: 
  Country: None (occurrence: None)
  Receive Date: 20050502
  Receipt Date: 20050419
  Transmission Date: 20051028
  Serious: Yes (Life-Threatening, Other)
  Sender: FDA-Public Use
  Company Number: 2005025218

PATIENT
  Age: 56 Year
  Sex: Male
  Weight: 49 kg

DRUGS (8)
  1. IRINOTECAN HCL [Suspect]
     Indication: RECTAL CANCER
     Dosage: 60 MG INTRAVENOUS
     Route: 042
     Dates: start: 20040301, end: 20040301
  2. METHYLPREDNISOLOONE SODIUM SUCCINATE [Concomitant]
  3. CALCIUM LEVOFOLINATE [Concomitant]
  4. FENTANYL [Concomitant]
  5. MORPHINE [Concomitant]
  6. FLUOROURACIL [Concomitant]
  7. BETAMETHASONE [Concomitant]
  8. FAMOTIDINE [Concomitant]

REACTIONS (9)
  - ABDOMINAL PAIN [None]
  - ANOREXIA [None]
  - DUODENAL PERFORATION [None]
  - DUODENAL ULCER [None]
  - MALAISE [None]
  - NAUSEA [None]
  - NEUROBLASTOMA [None]
  - STRESS [None]
  - THERAPY NON-RESPONDER [None]
